FAERS Safety Report 10091698 (Version 1)
Quarter: 2014Q2

REPORT INFORMATION
  Report Type: Spontaneous
  Country: US (occurrence: US)
  Receive Date: 20140421
  Receipt Date: 20140421
  Transmission Date: 20141212
  Serious: Yes (Other)
  Sender: FDA-Public Use
  Company Number: US-NAPPMUNDI-USA-2014-0112110

PATIENT
  Sex: Male

DRUGS (1)
  1. OXYCODONE HCL IMMEDIATE RELEASE (91-490) [Suspect]
     Indication: PAIN
     Route: 048

REACTIONS (1)
  - Accidental overdose [Unknown]
